FAERS Safety Report 6496163-7 (Version None)
Quarter: 2009Q4

REPORT INFORMATION
  Report Type: 
  Country: None (occurrence: None)
  Receive Date: 20091214
  Receipt Date: 20091008
  Transmission Date: 20100525
  Serious: No
  Sender: FDA-Public Use
  Company Number: US-BRISTOL-MYERS SQUIBB COMPANY-14812754

PATIENT
  Age: 3 Decade
  Sex: Male

DRUGS (2)
  1. ABILIFY [Suspect]
     Indication: SCHIZOPHRENIA
     Dates: start: 20090101
  2. AMBIEN [Concomitant]

REACTIONS (1)
  - RASH PUSTULAR [None]
